FAERS Safety Report 21856253 (Version 2)
Quarter: 2023Q1

REPORT INFORMATION
  Report Type: Spontaneous
  Country: CN (occurrence: CN)
  Receive Date: 20230112
  Receipt Date: 20230123
  Transmission Date: 20230418
  Serious: Yes (Death, Other)
  Sender: FDA-Public Use
  Company Number: CN-GILEAD-2023-0612476

PATIENT
  Age: 60 Year
  Sex: Male

DRUGS (2)
  1. VEMLIDY [Suspect]
     Active Substance: TENOFOVIR ALAFENAMIDE FUMARATE
     Indication: Hepatitis B
     Dosage: 1 DOSAGE FORM, QD
     Route: 048
  2. LENVATINIB [Concomitant]
     Active Substance: LENVATINIB
     Indication: Hepatic cancer

REACTIONS (4)
  - Metastases to lung [Fatal]
  - Upper gastrointestinal haemorrhage [Fatal]
  - Hepatitis B DNA increased [Unknown]
  - Pyrexia [Not Recovered/Not Resolved]

NARRATIVE: CASE EVENT DATE: 20221001
